FAERS Safety Report 7690748-8 (Version None)
Quarter: 2011Q3

REPORT INFORMATION
  Report Type: 
  Country: None (occurrence: None)
  Receive Date: 20110818
  Receipt Date: 20110726
  Transmission Date: 20111222
  Serious: Yes (Other)
  Sender: FDA-Public Use
  Company Number: GB-ASTELLAS-2011US004919

PATIENT
  Age: 68 Year
  Sex: Female

DRUGS (2)
  1. TARCEVA [Suspect]
     Indication: METASTASES TO LUNG
     Dosage: 150 MG, UNKNOWN/D
     Route: 048
  2. TARCEVA [Suspect]
     Dosage: 100 MG, UID/QD
     Route: 048

REACTIONS (3)
  - IRIS DISORDER [None]
  - PYREXIA [None]
  - UVEITIS [None]
